FAERS Safety Report 5322830-4 (Version None)
Quarter: 2007Q2

REPORT INFORMATION
  Report Type: 
  Country: None (occurrence: None)
  Receive Date: 20070511
  Receipt Date: 20070430
  Transmission Date: 20071010
  Serious: Yes (Other)
  Sender: FDA-Public Use
  Company Number: US-PFIZER INC-2007035011

PATIENT
  Sex: Male

DRUGS (3)
  1. DILANTIN [Suspect]
  2. FOSAMAX [Suspect]
  3. MIACALCIN [Concomitant]

REACTIONS (2)
  - OESOPHAGITIS [None]
  - OSTEOPOROSIS [None]
